FAERS Safety Report 8236610-3 (Version None)
Quarter: 2012Q1

REPORT INFORMATION
  Report Type: 
  Country: None (occurrence: None)
  Receive Date: 20120326
  Receipt Date: 20120326
  Transmission Date: 20120608
  Serious: No
  Sender: FDA-Public Use
  Company Number: None

PATIENT
  Sex: Male
  Weight: 77.1115 kg

DRUGS (1)
  1. IPRATROPIUM BROMIDE [Suspect]
     Indication: RHINORRHOEA
     Dosage: EACH NASAL TWICE DAY
     Dates: start: 20120228

REACTIONS (3)
  - DIZZINESS [None]
  - HYPERHIDROSIS [None]
  - HEADACHE [None]
